FAERS Safety Report 8532644-X (Version None)
Quarter: 2012Q3

REPORT INFORMATION
  Report Type: 
  Country: None (occurrence: None)
  Receive Date: 20120724
  Receipt Date: 20120619
  Transmission Date: 20120928
  Serious: Yes (Hospitalization, Other)
  Sender: FDA-Public Use
  Company Number: US-JNJFOC-20120610359

PATIENT
  Sex: Female
  Weight: 93.44 kg

DRUGS (2)
  1. REMICADE [Suspect]
     Indication: PSORIATIC ARTHROPATHY
     Route: 042
     Dates: start: 20100920, end: 20110411
  2. PLAQUENIL [Concomitant]
     Route: 065

REACTIONS (3)
  - SYSTEMIC LUPUS ERYTHEMATOSUS [None]
  - PSORIASIS [None]
  - PERICARDIAL EFFUSION [None]
